FAERS Safety Report 5168512-3 (Version None)
Quarter: 2006Q4

REPORT INFORMATION
  Report Type: 
  Country: None (occurrence: None)
  Receive Date: 20061208
  Receipt Date: 20061031
  Transmission Date: 20070319
  Serious: Yes (Death, Life-Threatening)
  Sender: FDA-Public Use
  Company Number: FR-BOEHRINGER INGELHEIM GMBH, GERMANY-2006-FF-01196FF

PATIENT
  Age: 41 Year
  Sex: Male
  Weight: 59 kg

DRUGS (10)
  1. APTIVUS [Suspect]
     Indication: HIV INFECTION
     Dosage: TPV: 500MG B.I.D. / RTV: 100 MG EVERY 36 HOURS
     Route: 048
     Dates: start: 20060315, end: 20060913
  2. APTIVUS [Suspect]
     Dosage: TPV: 250MG 6 TIMES DAILY / RTV: 100 MG EVERY 36 HOURS
     Route: 048
     Dates: start: 20060914, end: 20061022
  3. LOVENOX [Suspect]
     Route: 058
     Dates: start: 20061019, end: 20061020
  4. FUNGIZONE [Concomitant]
     Route: 048
  5. MEDROL [Concomitant]
     Route: 048
     Dates: start: 20060815
  6. NEORAL [Concomitant]
     Route: 048
     Dates: start: 20060813
  7. CELLCEPT [Concomitant]
     Route: 048
     Dates: start: 20060808
  8. VIREAD [Concomitant]
     Indication: HIV INFECTION
     Route: 048
     Dates: start: 20060301
  9. FUZEON [Concomitant]
     Indication: HIV INFECTION
     Route: 058
     Dates: start: 20060301
  10. AVLOCARDYL [Concomitant]

REACTIONS (2)
  - HAEMATOMA [None]
  - HAEMORRHAGE INTRACRANIAL [None]
